FAERS Safety Report 7380854-X (Version None)
Quarter: 2011Q1

REPORT INFORMATION
  Report Type: 
  Country: None (occurrence: None)
  Receive Date: 20110329
  Receipt Date: 20110328
  Transmission Date: 20110831
  Serious: Yes (Hospitalization)
  Sender: FDA-Public Use
  Company Number: D0070825A

PATIENT
  Age: 19 Year
  Sex: Male

DRUGS (1)
  1. DUAC [Suspect]
     Route: 061
     Dates: start: 20101001

REACTIONS (1)
  - DEPRESSION [None]
